FAERS Safety Report 5860238-3 (Version None)
Quarter: 2008Q3

REPORT INFORMATION
  Report Type: 
  Country: None (occurrence: None)
  Receive Date: 20080818
  Receipt Date: 20080702
  Transmission Date: 20090109
  Serious: No
  Sender: FDA-Public Use
  Company Number: WAES 0807USA00598

PATIENT
  Age: 80 Year
  Sex: Female

DRUGS (6)
  1. JANUVIA [Suspect]
     Indication: BLOOD GLUCOSE
     Dosage: 100 MG/DAILY/PO
     Route: 048
     Dates: start: 20080624
  2. ACTOS [Concomitant]
  3. LASIX [Concomitant]
  4. PLAVIX [Concomitant]
  5. ZOCOR [Concomitant]
  6. POTASSIUM CHLORIDE [Concomitant]

REACTIONS (1)
  - MUSCLE SPASMS [None]
